FAERS Safety Report 9513400 (Version 1)
Quarter: 2013Q3

REPORT INFORMATION
  Report Type: Spontaneous
  Country: US (occurrence: US)
  Receive Date: 20130910
  Receipt Date: 20130910
  Transmission Date: 20140515
  Serious: No
  Sender: FDA-Public Use
  Company Number: US-TARO-2012P1051843

PATIENT
  Age: 79 Year
  Sex: Female
  Weight: 71.67 kg

DRUGS (7)
  1. WARFARIN SODIUM TABLETS USP 1MG [Suspect]
     Route: 048
     Dates: start: 20120715, end: 20120716
  2. WARFARIN SODIUM TABLETS USP 1MG [Suspect]
     Route: 048
     Dates: start: 20120718, end: 20120718
  3. WARFARIN SODIUM TABLETS USP 1MG [Suspect]
     Route: 048
     Dates: start: 20120719, end: 20120725
  4. WARFARIN SODIUM TABLETS USP 1MG [Suspect]
     Route: 048
     Dates: start: 20120726
  5. WARFARIN SODIUM TABLETS USP 2.5MG [Suspect]
     Route: 048
     Dates: start: 20120715, end: 20120725
  6. QUINAPRIL [Concomitant]
  7. METOPROLOL [Concomitant]

REACTIONS (1)
  - Drug ineffective [Not Recovered/Not Resolved]
